FAERS Safety Report 10010237 (Version 2)
Quarter: 2014Q1

REPORT INFORMATION
  Report Type: Spontaneous
  Country: US (occurrence: US)
  Receive Date: 20140313
  Receipt Date: 20140314
  Transmission Date: 20141002
  Serious: No
  Sender: FDA-Public Use
  Company Number: US-009507513-1403USA004800

PATIENT
  Age: 19 Year
  Sex: Female
  Weight: 38.55 kg

DRUGS (1)
  1. NUVARING [Suspect]
     Dosage: UNK
     Route: 059
     Dates: start: 20140303

REACTIONS (1)
  - Anxiety [Unknown]
